FAERS Safety Report 9247967 (Version 2)
Quarter: 2013Q2

REPORT INFORMATION
  Report Type: Spontaneous
  Country: US (occurrence: US)
  Receive Date: 20130423
  Receipt Date: 20130423
  Transmission Date: 20140414
  Serious: No
  Sender: FDA-Public Use
  Company Number: US-MYLANLABS-2013S1004808

PATIENT
  Age: 73 Year
  Sex: Female

DRUGS (6)
  1. IPRATROPIUM BROMIDE AND ALBUTEROL SULFATE INHALATION SOLUTION [Suspect]
     Indication: CHRONIC OBSTRUCTIVE PULMONARY DISEASE
     Route: 055
     Dates: start: 201206, end: 201206
  2. IPRATROPIUM BROMIDE AND ALBUTEROL SULFATE INHALATION SOLUTION [Suspect]
     Indication: ASTHMA
     Route: 055
     Dates: start: 201206, end: 201206
  3. IPRATROPIUM BROMIDE AND ALBUTEROL SULFATE INHALATION SOLUTION [Suspect]
     Indication: EMPHYSEMA
     Route: 055
     Dates: start: 201206, end: 201206
  4. SPIRIVA [Concomitant]
     Indication: ASTHMA
     Route: 055
  5. ADVAIR [Concomitant]
     Indication: ASTHMA
     Route: 055
  6. OXYGEN [Concomitant]
     Indication: ASTHMA
     Route: 045

REACTIONS (1)
  - Oropharyngeal swelling [Recovered/Resolved]
